FAERS Safety Report 7843273-5 (Version None)
Quarter: 2011Q4

REPORT INFORMATION
  Report Type: 
  Country: None (occurrence: None)
  Receive Date: 20111020
  Receipt Date: 20111006
  Transmission Date: 20120403
  Serious: Yes (Hospitalization)
  Sender: FDA-Public Use
  Company Number: 2011SP047125

PATIENT
  Age: 45 Year
  Sex: Female

DRUGS (2)
  1. REBETOL [Suspect]
     Indication: HEPATITIS C
     Dosage: 1000 MG;QD
     Dates: start: 20100901
  2. VIRAFERONPEG [Suspect]
     Indication: HEPATITIS C
     Dosage: 120 MCG;QW
     Dates: start: 20100901

REACTIONS (1)
  - LUNG DISORDER [None]
